FAERS Safety Report 7151268-2 (Version None)
Quarter: 2010Q4

REPORT INFORMATION
  Report Type: 
  Country: None (occurrence: None)
  Receive Date: 20101207
  Receipt Date: 20101207
  Transmission Date: 20110411
  Serious: No
  Sender: FDA-Public Use
  Company Number: None

PATIENT
  Age: 54 Year
  Sex: Female
  Weight: 68.0396 kg

DRUGS (2)
  1. SINGULAIR [Suspect]
     Indication: ASTHMA
     Dosage: 1 PILL 1 BEFORE BED PO
     Route: 048
     Dates: start: 20100301, end: 20100815
  2. SYNTHROID [Concomitant]

REACTIONS (2)
  - DEPRESSION [None]
  - PERSONALITY CHANGE [None]
